FAERS Safety Report 15898475 (Version 1)
Quarter: 2019Q1

REPORT INFORMATION
  Report Type: Spontaneous
  Country: ES (occurrence: ES)
  Receive Date: 20190201
  Receipt Date: 20190201
  Transmission Date: 20190417
  Serious: Yes (Other)
  Sender: FDA-Public Use
  Company Number: ES-ACCORD-104524

PATIENT
  Age: 60 Year
  Sex: Female
  Weight: 78 kg

DRUGS (2)
  1. CARBOPLATIN. [Suspect]
     Active Substance: CARBOPLATIN
     Indication: NEOADJUVANT THERAPY
     Route: 042
     Dates: start: 20171228, end: 20180207
  2. ABRAXANE [Suspect]
     Active Substance: PACLITAXEL
     Indication: NEOADJUVANT THERAPY
     Dosage: 5 MG/ML
     Route: 042
     Dates: start: 20180110, end: 20180207

REACTIONS (3)
  - Asthenia [Recovering/Resolving]
  - Skin toxicity [Recovered/Resolved]
  - Neurotoxicity [Recovering/Resolving]

NARRATIVE: CASE EVENT DATE: 20180127
